FAERS Safety Report 4580733-7 (Version None)
Quarter: 2005Q1

REPORT INFORMATION
  Report Type: 
  Country: None (occurrence: None)
  Receive Date: 20050214
  Receipt Date: 20040520
  Transmission Date: 20050727
  Serious: Yes (Life-Threatening, Hospitalization, Disabling, Other)
  Sender: FDA-Public Use
  Company Number: US-GLAXOSMITHKLINE-A0511704A

PATIENT
  Age: 51 Year
  Sex: Female

DRUGS (1)
  1. LAMICTAL [Suspect]
     Indication: NEUROPATHIC PAIN
     Dosage: 25MG TWICE PER DAY
     Route: 048
     Dates: start: 20030911, end: 20030924

REACTIONS (1)
  - TOXIC EPIDERMAL NECROLYSIS [None]
